FAERS Safety Report 8209761-7 (Version None)
Quarter: 2012Q1

REPORT INFORMATION
  Report Type: 
  Country: None (occurrence: None)
  Receive Date: 20120228
  Receipt Date: 20110310
  Transmission Date: 20120608
  Serious: Yes (Hospitalization)
  Sender: FDA-Public Use
  Company Number: RB-23720-2011

PATIENT
  Age: 37 Year
  Sex: Male

DRUGS (2)
  1. SUBUTEX [Suspect]
     Indication: DRUG DEPENDENCE
     Dosage: (20 MG QD SUBLINGUAL)
     Route: 060
     Dates: start: 20110101
  2. SUBOXONE [Suspect]
     Indication: DRUG DEPENDENCE
     Dosage: (20 MG QD SUBLINGUAL)
     Route: 060
     Dates: start: 20101001, end: 20110101

REACTIONS (2)
  - JOINT INJURY [None]
  - PROCEDURAL PAIN [None]
